FAERS Safety Report 14573077 (Version 1)
Quarter: 2018Q1

REPORT INFORMATION
  Report Type: Spontaneous
  Country: US (occurrence: US)
  Receive Date: 20180223
  Receipt Date: 20180223
  Transmission Date: 20180509
  Serious: No
  Sender: FDA-Public Use
  Company Number: None

PATIENT
  Age: 42 Year
  Sex: Female
  Weight: 72 kg

DRUGS (3)
  1. FLONASE [Concomitant]
     Active Substance: FLUTICASONE PROPIONATE
  2. CLARITIN [Concomitant]
     Active Substance: LORATADINE
  3. TAMIFLU [Suspect]
     Active Substance: OSELTAMIVIR PHOSPHATE
     Indication: INFLUENZA VIRUS TEST POSITIVE
     Route: 048
     Dates: start: 20180216, end: 20180218

REACTIONS (5)
  - Malaise [None]
  - Facial pain [None]
  - Head discomfort [None]
  - Panic attack [None]
  - Palpitations [None]

NARRATIVE: CASE EVENT DATE: 20180218
